FAERS Safety Report 21263302 (Version 1)
Quarter: 2022Q3

REPORT INFORMATION
  Report Type: Spontaneous
  Country: US (occurrence: US)
  Receive Date: 20220829
  Receipt Date: 20220829
  Transmission Date: 20221027
  Serious: Yes (Other)
  Sender: FDA-Public Use
  Company Number: US-AMGEN-USASP2022147233

PATIENT
  Age: 54 Year
  Sex: Female

DRUGS (7)
  1. RITUXIMAB [Suspect]
     Active Substance: RITUXIMAB
     Indication: Central nervous system lymphoma
     Route: 065
  2. DEXAMETHASONE [Concomitant]
     Active Substance: DEXAMETHASONE
     Indication: Central nervous system lymphoma
  3. METHOTREXATE [Concomitant]
     Active Substance: METHOTREXATE
     Indication: Central nervous system lymphoma
  4. PROCARBAZINE [Concomitant]
     Active Substance: PROCARBAZINE
     Indication: Central nervous system lymphoma
  5. VINCRISTINE [Concomitant]
     Active Substance: VINCRISTINE
     Indication: Central nervous system lymphoma
  6. MYCOPHENOLATE MOFETIL [Concomitant]
     Active Substance: MYCOPHENOLATE MOFETIL
  7. HYDROXYCHLOROQUINE [Concomitant]
     Active Substance: HYDROXYCHLOROQUINE

REACTIONS (1)
  - Diffuse large B-cell lymphoma [Recovering/Resolving]
